FAERS Safety Report 20968014 (Version 1)
Quarter: 2022Q2

REPORT INFORMATION
  Report Type: Spontaneous
  Country: CH (occurrence: CH)
  Receive Date: 20220616
  Receipt Date: 20220616
  Transmission Date: 20220720
  Serious: Yes (Hospitalization)
  Sender: FDA-Public Use
  Company Number: None

PATIENT
  Age: 51 Year
  Sex: Male

DRUGS (35)
  1. GLYCOPYRRONIUM\INDACATEROL [Suspect]
     Active Substance: GLYCOPYRRONIUM\INDACATEROL
     Indication: Product used for unknown indication
     Dosage: 110/50 MCG, QD
     Route: 065
     Dates: start: 20220422
  2. OXAZEPAM [Suspect]
     Active Substance: OXAZEPAM
     Indication: Alcoholism
     Dosage: 15 MG, Q6H
     Route: 048
     Dates: start: 20220405, end: 20220428
  3. OXAZEPAM [Suspect]
     Active Substance: OXAZEPAM
     Dosage: 15 MG, BID
     Route: 048
     Dates: start: 20220429, end: 20220501
  4. OXAZEPAM [Suspect]
     Active Substance: OXAZEPAM
     Dosage: 30 MG, Q5H
     Route: 048
     Dates: start: 20220502
  5. OXAZEPAM [Suspect]
     Active Substance: OXAZEPAM
     Dosage: 7.5 MG (IN TOTAL)
     Route: 048
     Dates: start: 20220427, end: 20220427
  6. OXAZEPAM [Suspect]
     Active Substance: OXAZEPAM
     Dosage: 7.5 MG (IN TOTAL)
     Route: 048
     Dates: start: 20220430, end: 20220430
  7. OXAZEPAM [Suspect]
     Active Substance: OXAZEPAM
     Dosage: 15 MG
     Route: 048
     Dates: start: 20220502
  8. OXAZEPAM [Suspect]
     Active Substance: OXAZEPAM
     Dosage: UNK UNK, PRN
     Route: 065
     Dates: start: 20220503
  9. CLONIDINE [Suspect]
     Active Substance: CLONIDINE
     Indication: Product used for unknown indication
     Dosage: 450 UG, QD
     Route: 065
     Dates: start: 20220503, end: 20220517
  10. CLONIDINE [Suspect]
     Active Substance: CLONIDINE
     Dosage: 375 UG
     Route: 065
     Dates: start: 20220518, end: 20220519
  11. CLONIDINE [Suspect]
     Active Substance: CLONIDINE
     Dosage: 150 UG
     Route: 065
     Dates: start: 20220519
  12. LISINOPRIL [Suspect]
     Active Substance: LISINOPRIL
     Indication: Product used for unknown indication
     Dosage: 5 MG, QD
     Route: 065
     Dates: start: 20220503
  13. DAFALGAN [Suspect]
     Active Substance: ACETAMINOPHEN
     Indication: Product used for unknown indication
     Dosage: 1000 MG, QID
     Route: 065
     Dates: start: 20220502, end: 20220502
  14. DAFALGAN [Suspect]
     Active Substance: ACETAMINOPHEN
     Dosage: UNK UNK, PRN
     Route: 065
     Dates: start: 20220503
  15. ALBUTEROL SULFATE\IPRATROPIUM BROMIDE [Suspect]
     Active Substance: ALBUTEROL SULFATE\IPRATROPIUM BROMIDE
     Indication: Product used for unknown indication
     Dosage: 2.5/0.5 MG 1X/J  ; AS NECESSARY
     Route: 065
     Dates: start: 20220421, end: 20220422
  16. ALBUTEROL SULFATE\IPRATROPIUM BROMIDE [Suspect]
     Active Substance: ALBUTEROL SULFATE\IPRATROPIUM BROMIDE
     Dosage: EN RESERVE
     Route: 065
     Dates: start: 20220509
  17. RISPERDAL CONSTA [Concomitant]
     Active Substance: RISPERIDONE
     Indication: Product used for unknown indication
     Dosage: AS NECESSARY
     Route: 065
     Dates: end: 20220513
  18. RISPERDAL CONSTA [Concomitant]
     Active Substance: RISPERIDONE
     Dosage: IN TOTAL (ANTI-XA IU/ML)
     Route: 042
     Dates: start: 20220427, end: 20220427
  19. RISPERDAL CONSTA [Concomitant]
     Active Substance: RISPERIDONE
     Dosage: UNK
     Route: 048
     Dates: start: 20220514
  20. ENOXAPARIN SODIUM [Concomitant]
     Active Substance: ENOXAPARIN SODIUM
     Indication: Product used for unknown indication
     Dosage: UNK
     Route: 065
     Dates: start: 20220426
  21. THIAMINE HYDROCHLORIDE [Concomitant]
     Active Substance: THIAMINE HYDROCHLORIDE
     Indication: Product used for unknown indication
     Dosage: UNK
     Route: 065
     Dates: start: 20220422
  22. ALLOPURINOL [Concomitant]
     Active Substance: ALLOPURINOL
     Indication: Product used for unknown indication
     Route: 065
     Dates: end: 20220420
  23. ALLOPURINOL [Concomitant]
     Active Substance: ALLOPURINOL
     Dosage: UNK
     Route: 065
     Dates: start: 20220427, end: 20220503
  24. METFORMIN HYDROCHLORIDE [Concomitant]
     Active Substance: METFORMIN HYDROCHLORIDE
     Indication: Product used for unknown indication
     Dosage: UNK
     Route: 065
     Dates: end: 20220506
  25. FENOFIBRATE [Concomitant]
     Active Substance: FENOFIBRATE
     Indication: Product used for unknown indication
     Route: 065
     Dates: end: 20220503
  26. LASIX [Concomitant]
     Active Substance: FUROSEMIDE
     Indication: Product used for unknown indication
     Route: 065
     Dates: start: 20220421, end: 20220424
  27. VITAMINS [Concomitant]
     Active Substance: VITAMINS
     Indication: Product used for unknown indication
     Route: 065
     Dates: start: 20220426, end: 20220503
  28. TRULICITY [Concomitant]
     Active Substance: DULAGLUTIDE
     Indication: Product used for unknown indication
     Dosage: IN TOTAL
     Route: 065
     Dates: start: 20220426, end: 20220426
  29. POTASSIUM CHLORIDE [Concomitant]
     Active Substance: POTASSIUM CHLORIDE
     Indication: Product used for unknown indication
     Route: 065
     Dates: start: 20220427, end: 20220429
  30. POTASSIUM CHLORIDE [Concomitant]
     Active Substance: POTASSIUM CHLORIDE
     Dosage: UNK
     Route: 065
     Dates: start: 20220509, end: 20220510
  31. POTASSIUM CHLORIDE [Concomitant]
     Active Substance: POTASSIUM CHLORIDE
     Dosage: UNK
     Route: 065
     Dates: start: 20220516
  32. PREDNISONE [Concomitant]
     Active Substance: PREDNISONE
     Indication: Product used for unknown indication
     Route: 065
     Dates: start: 20220421, end: 20220426
  33. TORSEMIDE [Concomitant]
     Active Substance: TORSEMIDE
     Indication: Product used for unknown indication
     Dosage: IN TOTAL
     Route: 065
     Dates: start: 20220422, end: 20220422
  34. TORSEMIDE [Concomitant]
     Active Substance: TORSEMIDE
     Dosage: UNK
     Route: 065
     Dates: start: 20220426, end: 20220428
  35. TOBREX [Concomitant]
     Active Substance: TOBRAMYCIN
     Indication: Product used for unknown indication
     Route: 065
     Dates: start: 20220422, end: 20220429

REACTIONS (1)
  - Confusional state [Not Recovered/Not Resolved]

NARRATIVE: CASE EVENT DATE: 20220503
